FAERS Safety Report 25381851 (Version 1)
Quarter: 2025Q2

REPORT INFORMATION
  Report Type: Spontaneous
  Country: US (occurrence: US)
  Receive Date: 20250531
  Receipt Date: 20250531
  Transmission Date: 20250716
  Serious: No
  Sender: AMNEAL
  Company Number: US-AMNEAL PHARMACEUTICALS-2024-AMRX-02737

PATIENT

DRUGS (4)
  1. TESTOSTERONE [Suspect]
     Active Substance: TESTOSTERONE
     Indication: Product used for unknown indication
     Route: 061
     Dates: start: 20240214
  2. MYRBETRIQ [Concomitant]
     Active Substance: MIRABEGRON
     Indication: Hypertonic bladder
     Route: 065
     Dates: start: 20240307, end: 20240422
  3. MYRBETRIQ [Concomitant]
     Active Substance: MIRABEGRON
     Indication: Nocturia
  4. CORTISONE [Concomitant]
     Active Substance: CORTISONE
     Indication: Groin pain
     Route: 065

REACTIONS (2)
  - Drug ineffective [Unknown]
  - Fatigue [Unknown]
